FAERS Safety Report 22294393 (Version 1)
Quarter: 2023Q2

REPORT INFORMATION
  Report Type: Spontaneous
  Country: US (occurrence: None)
  Receive Date: 20230505
  Receipt Date: 20230505
  Transmission Date: 20230722
  Serious: No
  Sender: FDA-Public Use
  Company Number: None

PATIENT
  Sex: Male
  Weight: 111.13 kg

DRUGS (13)
  1. ELIGARD [Suspect]
     Active Substance: LEUPROLIDE ACETATE
     Indication: Prostate cancer
     Dosage: OTHER FREQUENCY : Q 3 MONTHS;?
     Route: 058
  2. ACETAMINOPHEN [Concomitant]
  3. ALLOPURINOL [Concomitant]
     Active Substance: ALLOPURINOL
  4. AMLODIPINE [Concomitant]
     Active Substance: AMLODIPINE BESYLATE
  5. BICALUTAMIDE [Concomitant]
     Active Substance: BICALUTAMIDE
  6. VITAMINS [Concomitant]
     Active Substance: VITAMINS
  7. COLCHICINE [Concomitant]
     Active Substance: COLCHICINE
  8. FUROSEMIDE [Concomitant]
  9. LEVOTHYROXINE [Concomitant]
  10. POTASSIUM CITRATE [Concomitant]
  11. VITAMIN B12 [Concomitant]
     Active Substance: CYANOCOBALAMIN
  12. VITAMIN D3 [Concomitant]
  13. XARELTO [Concomitant]
     Active Substance: RIVAROXABAN

REACTIONS (1)
  - COVID-19 [None]
